FAERS Safety Report 8194145 (Version 5)
Quarter: 2014Q3

REPORT INFORMATION
  Report Type: Spontaneous
  Country: US (occurrence: US)
  Receive Date: 20111021
  Receipt Date: 20140709
  Transmission Date: 20150326
  Serious: Yes (Other)
  Sender: FDA-Public Use
  Company Number: US-ASTRAZENECA-2011SE62107

PATIENT
  Age: 58 Year
  Sex: Male
  Weight: 113.4 kg

DRUGS (7)
  1. CRESTOR [Suspect]
     Active Substance: ROSUVASTATIN CALCIUM
     Indication: HYPERLIPIDAEMIA
     Route: 048
  2. CRESTOR [Suspect]
     Active Substance: ROSUVASTATIN CALCIUM
     Indication: BLOOD CHOLESTEROL INCREASED
     Route: 048
     Dates: end: 2014
  3. XANAX [Concomitant]
     Active Substance: ALPRAZOLAM
  4. CRESTOR [Suspect]
     Active Substance: ROSUVASTATIN CALCIUM
     Indication: BLOOD CHOLESTEROL INCREASED
     Route: 048
  5. PAXIL [Concomitant]
     Active Substance: PAROXETINE HYDROCHLORIDE
  6. CRESTOR [Suspect]
     Active Substance: ROSUVASTATIN CALCIUM
     Indication: HYPERLIPIDAEMIA
     Route: 048
     Dates: end: 2014
  7. WELLBUTRIN [Concomitant]
     Active Substance: BUPROPION HYDROCHLORIDE

REACTIONS (14)
  - Diffuse large B-cell lymphoma stage I [Unknown]
  - Irritable bowel syndrome [Unknown]
  - Dyspepsia [Unknown]
  - Myalgia [Unknown]
  - Peritonsillar abscess [Unknown]
  - Immune thrombocytopenic purpura [Unknown]
  - Fatigue [Unknown]
  - Anxiety [Unknown]
  - Nasal obstruction [Unknown]
  - Blood cholesterol increased [Unknown]
  - Malaise [Unknown]
  - Weight increased [Unknown]
  - Depression [Unknown]
  - Drug dose omission [Unknown]

NARRATIVE: CASE EVENT DATE: 20081202
